FAERS Safety Report 24556117 (Version 3)
Quarter: 2025Q1

REPORT INFORMATION
  Report Type: Spontaneous
  Country: EG (occurrence: EG)
  Receive Date: 20241028
  Receipt Date: 20250306
  Transmission Date: 20250408
  Serious: Yes (Other)
  Sender: NOVO NORDISK
  Company Number: EG-NOVOPROD-1302002

PATIENT
  Age: 67 Year
  Sex: Female
  Weight: 70 kg

DRUGS (2)
  1. INSULIN HUMAN [Suspect]
     Active Substance: INSULIN HUMAN
     Indication: Diabetes mellitus
     Dosage: 70 IU, QD (40U MORNINIG /30U AT NIGHT)
     Route: 058
  2. INSULIN HUMAN [Suspect]
     Active Substance: INSULIN HUMAN
     Indication: Diabetes mellitus
     Dosage: 70 IU, QD (40U MORNINIG /30U AT NIGHT)
     Route: 058

REACTIONS (2)
  - Cataract [Not Recovered/Not Resolved]
  - Retinal haemorrhage [Not Recovered/Not Resolved]
